FAERS Safety Report 16082491 (Version 1)
Quarter: 2019Q1

REPORT INFORMATION
  Report Type: Spontaneous
  Country: US (occurrence: US)
  Receive Date: 20190318
  Receipt Date: 20190318
  Transmission Date: 20190418
  Serious: Yes (Life-Threatening, Hospitalization, Other)
  Sender: FDA-Public Use
  Company Number: US-AUROBINDO-AUR-APL-2018-020642

PATIENT
  Age: 29 Year
  Sex: Male

DRUGS (3)
  1. ZIPRASIDONE HYDROCHLORIDE. [Suspect]
     Active Substance: ZIPRASIDONE HYDROCHLORIDE
     Indication: TOURETTE^S DISORDER
     Dosage: 40 MILLIGRAM, DAILY
     Route: 065
  2. ZIPRASIDONE HYDROCHLORIDE. [Suspect]
     Active Substance: ZIPRASIDONE HYDROCHLORIDE
     Indication: OBSESSIVE-COMPULSIVE DISORDER
  3. PREDNISONE. [Concomitant]
     Active Substance: PREDNISONE
     Indication: MUSCULAR WEAKNESS
     Dosage: UNK
     Route: 065

REACTIONS (7)
  - Respiratory disorder [Recovered/Resolved]
  - Blood lactic acid increased [Recovered/Resolved]
  - Myopathy toxic [Recovered/Resolved]
  - Respiratory muscle weakness [Recovered/Resolved]
  - Pneumonia aspiration [Recovered/Resolved]
  - Blood creatine phosphokinase increased [Recovered/Resolved]
  - Toxicity to various agents [Recovered/Resolved]
